FAERS Safety Report 8920110 (Version 1)
Quarter: 2012Q4

REPORT INFORMATION
  Report Type: 
  Country: US (occurrence: US)
  Receive Date: 20121121
  Receipt Date: 20121121
  Transmission Date: 20130627
  Serious: No
  Sender: FDA-Public Use
  Company Number: US-009507513-1211USA008122

PATIENT
  Sex: Female

DRUGS (2)
  1. CLARITIN [Suspect]
     Indication: NASOPHARYNGITIS
     Dosage: 10 mg, qd
     Route: 048
     Dates: start: 201209
  2. CLARITIN [Suspect]
     Dosage: 20 mg, Once
     Route: 048
     Dates: start: 20120922

REACTIONS (2)
  - Accidental overdose [Unknown]
  - Off label use [Unknown]
